FAERS Safety Report 10234973 (Version 2)
Quarter: 2014Q3

REPORT INFORMATION
  Report Type: Report from Study
  Country: CA (occurrence: CA)
  Receive Date: 20140613
  Receipt Date: 20140730
  Transmission Date: 20150326
  Serious: Yes (Other)
  Sender: FDA-Public Use
  Company Number: CA-BAYER-2014-083317

PATIENT
  Age: 66 Year
  Sex: Female

DRUGS (18)
  1. DILANTIN [Concomitant]
     Active Substance: PHENYTOIN
  2. PMS-AMANTADINE HYDROCHLORIDE [Concomitant]
  3. CRESTOR [Concomitant]
     Active Substance: ROSUVASTATIN CALCIUM
  4. NEURO [Concomitant]
  5. BETASERON [Suspect]
     Active Substance: INTERFERON BETA-1B
     Indication: MULTIPLE SCLEROSIS
     Dosage: 0.3 MG, UNK
     Dates: start: 20020102
  6. DIAMICRON MR [Concomitant]
     Active Substance: GLICLAZIDE
  7. METHOTREXATE [Concomitant]
     Active Substance: METHOTREXATE
  8. DOCUSATE [Concomitant]
     Active Substance: DOCUSATE
  9. PMS-HYDROMORPHONE [Concomitant]
     Active Substance: HYDROMORPHONE HYDROCHLORIDE
  10. NITRO [Concomitant]
     Active Substance: NITROGLYCERIN
  11. APO-DILTIAZ [Concomitant]
  12. LYRICA [Concomitant]
     Active Substance: PREGABALIN
  13. RIVASA [Concomitant]
     Active Substance: ASPIRIN
  14. VENTOLIN [Concomitant]
     Active Substance: ALBUTEROL SULFATE
  15. DETROL [Concomitant]
     Active Substance: TOLTERODINE TARTRATE
  16. EPIPEN [Concomitant]
     Active Substance: EPINEPHRINE
  17. PMS-NORTRIPTYLINE [Concomitant]
  18. FLOVENT [Concomitant]
     Active Substance: FLUTICASONE PROPIONATE

REACTIONS (4)
  - Epilepsy [Recovered/Resolved]
  - Syncope [Recovered/Resolved]
  - Fall [None]
  - Balance disorder [None]

NARRATIVE: CASE EVENT DATE: 20140503
